FAERS Safety Report 7372557-2 (Version None)
Quarter: 2011Q1

REPORT INFORMATION
  Report Type: 
  Country: None (occurrence: None)
  Receive Date: 20110324
  Receipt Date: 20110321
  Transmission Date: 20110831
  Serious: Yes (Other)
  Sender: FDA-Public Use
  Company Number: AU-BRISTOL-MYERS SQUIBB COMPANY-15573488

PATIENT
  Age: 83 Year
  Sex: Female
  Weight: 71 kg

DRUGS (1)
  1. KARVEA [Suspect]
     Indication: HYPERTENSION
     Route: 048
     Dates: start: 20060101

REACTIONS (1)
  - BLOOD SODIUM DECREASED [None]
